FAERS Safety Report 19174351 (Version 1)
Quarter: 2021Q2

REPORT INFORMATION
  Report Type: Spontaneous
  Country: US (occurrence: US)
  Receive Date: 20210423
  Receipt Date: 20210423
  Transmission Date: 20210717
  Serious: Yes (Other)
  Sender: FDA-Public Use
  Company Number: US-DRREDDYS-USA/USA/21/0134504

PATIENT
  Age: 33 Year
  Sex: Female

DRUGS (3)
  1. LYSINE HYDROCHLORIDE [Concomitant]
     Active Substance: LYSINE HYDROCHLORIDE
     Indication: PRODUCT USED FOR UNKNOWN INDICATION
  2. LEVOTHYROXINE SODIUM. [Concomitant]
     Active Substance: LEVOTHYROXINE SODIUM
     Indication: HYPOTHYROIDISM
  3. SIROLIMUS. [Suspect]
     Active Substance: SIROLIMUS
     Indication: FOETAL CARDIAC DISORDER
     Dosage: 10MG LOADING DOSE TITRATED TO A GOAL MATERNAL TROUGH OF 10 TO 15 NG/DL

REACTIONS (5)
  - Proteinuria [Unknown]
  - Pre-eclampsia [Unknown]
  - Product use in unapproved indication [Unknown]
  - Foetal growth restriction [Unknown]
  - Exposure during pregnancy [Unknown]
